FAERS Safety Report 9661238 (Version 3)
Quarter: 2013Q4

REPORT INFORMATION
  Report Type: Spontaneous
  Country: US (occurrence: None)
  Receive Date: 20131030
  Receipt Date: 20131125
  Transmission Date: 20140711
  Serious: Yes (Hospitalization)
  Sender: FDA-Public Use
  Company Number: 2013SGN00649

PATIENT
  Age: 22 Year
  Sex: Male
  Weight: 86.3 kg

DRUGS (6)
  1. BRENTUXIMAB VEDOTIN (BRENTUXIMAB VEDOTIN) INJECTION [Suspect]
     Indication: DIFFUSE LARGE B-CELL LYMPHOMA
     Route: 042
     Dates: start: 20130925, end: 20130925
  2. RITUXIMAB (RITUXIMAB) [Suspect]
     Indication: DIFFUSE LARGE B-CELL LYMPHOMA
     Route: 042
     Dates: start: 20130925, end: 20130925
  3. LORAZEPAM [Concomitant]
  4. OXYCODONE (OXYCODONE) [Concomitant]
  5. ACYCLOVIR (ACYCLOVIR) [Concomitant]
  6. TRIMETHOPRIM SULFAMETHOXAZOLE (SULFAMETHOXAZOLE, TRIMETHOPRIM) [Concomitant]

REACTIONS (6)
  - Febrile neutropenia [None]
  - Disease progression [None]
  - Soft tissue disorder [None]
  - Lymphadenopathy [None]
  - Pleural effusion [None]
  - Pulmonary mass [None]
